FAERS Safety Report 5401793-7 (Version None)
Quarter: 2007Q3

REPORT INFORMATION
  Report Type: 
  Country: None (occurrence: None)
  Receive Date: 20070731
  Receipt Date: 20070719
  Transmission Date: 20080115
  Serious: Yes (Other)
  Sender: FDA-Public Use
  Company Number: PT-PFIZER INC-2007060841

PATIENT
  Age: 50 Year
  Sex: Female

DRUGS (1)
  1. LYRICA [Suspect]
     Indication: TRIGEMINAL NEURALGIA
     Route: 048

REACTIONS (3)
  - CONDITION AGGRAVATED [None]
  - DRUG INEFFECTIVE FOR UNAPPROVED INDICATION [None]
  - NEURALGIA [None]
